FAERS Safety Report 9123819 (Version 1)
Quarter: 2013Q1

REPORT INFORMATION
  Report Type: Spontaneous
  Country: US (occurrence: US)
  Receive Date: 20130115
  Receipt Date: 20130115
  Transmission Date: 20140127
  Serious: Yes (Other)
  Sender: FDA-Public Use
  Company Number: US-009507513-1301USA005306

PATIENT
  Sex: 0

DRUGS (4)
  1. FOSAMAX [Suspect]
     Dosage: UNK
     Route: 048
     Dates: start: 2004, end: 2011
  2. ALENDRONATE SODIUM [Suspect]
     Dosage: UNK
     Route: 048
     Dates: start: 2004, end: 2011
  3. BONIVA [Suspect]
     Dosage: UNK
     Dates: start: 2004, end: 2011
  4. IBANDRONATE SODIUM [Suspect]
     Dosage: UNK
     Dates: start: 2004, end: 2011

REACTIONS (1)
  - Femur fracture [Unknown]
